FAERS Safety Report 23277635 (Version 2)
Quarter: 2023Q4

REPORT INFORMATION
  Report Type: Report from Study
  Country: CA (occurrence: None)
  Receive Date: 20231208
  Receipt Date: 20231219
  Transmission Date: 20240109
  Serious: Yes (Hospitalization)
  Sender: FDA-Public Use
  Company Number: 2023A277360

PATIENT
  Sex: Female

DRUGS (4)
  1. TEZSPIRE [Suspect]
     Active Substance: TEZEPELUMAB-EKKO
     Indication: Asthma
     Dosage: 210.0MG UNKNOWN
     Route: 058
     Dates: start: 20230306
  2. VENTOLIN [Concomitant]
     Active Substance: ALBUTEROL SULFATE
  3. ZENHALE [Concomitant]
     Active Substance: FORMOTEROL FUMARATE\MOMETASONE FUROATE
     Dosage: 2 INH BID
     Route: 055
  4. SPIRIVA RESPIMAT [Concomitant]
     Active Substance: TIOTROPIUM BROMIDE
     Dosage: 2 INH
     Route: 055

REACTIONS (10)
  - Chills [Unknown]
  - Hyperhidrosis [Unknown]
  - Fall [Unknown]
  - Dizziness postural [Unknown]
  - Pneumonia [Unknown]
  - Balance disorder [Unknown]
  - Asthma [Unknown]
  - Arthralgia [Unknown]
  - Body temperature increased [Unknown]
  - Drug ineffective [Unknown]
